FAERS Safety Report 20588740 (Version 6)
Quarter: 2023Q2

REPORT INFORMATION
  Report Type: Report from Study
  Country: CN (occurrence: CN)
  Receive Date: 20220314
  Receipt Date: 20230407
  Transmission Date: 20230721
  Serious: Yes (Other)
  Sender: FDA-Public Use
  Company Number: CN-NOVARTISPH-NVSC2022CN058089

PATIENT
  Age: 53 Year
  Sex: Female

DRUGS (6)
  1. ZYKADIA [Suspect]
     Active Substance: CERITINIB
     Indication: Non-small cell lung cancer
     Dosage: 450 MG (3 CAPSULES) (STOP DATE: 23 OCT 2021)
     Route: 048
  2. LEUCOGEN [Concomitant]
     Active Substance: LEUCOGEN
     Indication: White blood cell count
     Dosage: 20 MG
     Route: 048
     Dates: start: 20210222
  3. LEUCOGEN [Concomitant]
     Active Substance: LEUCOGEN
     Dosage: 40 MG
     Route: 048
     Dates: start: 20210616
  4. RECOMBINANT HUMAN GRANULOCYTE COLONY STIMULAT [Concomitant]
     Indication: White blood cell count
     Dosage: 150 UG
     Route: 058
     Dates: start: 20211022, end: 20211022
  5. CIMETIDINE [Concomitant]
     Active Substance: CIMETIDINE
     Indication: Prophylaxis
     Dosage: 400 MG (STOP DATE: 16 JUN 2021)
     Route: 042
     Dates: start: 20210616
  6. MANNITOL [Concomitant]
     Active Substance: MANNITOL
     Indication: Brain oedema
     Dosage: 25 G
     Route: 042
     Dates: start: 20211022, end: 20211022

REACTIONS (5)
  - Leukopenia [Recovered/Resolved]
  - Neutrophil count decreased [Recovered/Resolved]
  - Platelet count decreased [Recovered/Resolved]
  - Anaemia [Recovered/Resolved]
  - Blood cholesterol increased [Recovered/Resolved]

NARRATIVE: CASE EVENT DATE: 20210221
